FAERS Safety Report 5964727-2 (Version None)
Quarter: 2008Q4

REPORT INFORMATION
  Report Type: 
  Country: None (occurrence: None)
  Receive Date: 20081125
  Receipt Date: 20071113
  Transmission Date: 20090506
  Serious: No
  Sender: FDA-Public Use
  Company Number: US-AMGEN-US249130

PATIENT
  Sex: Female

DRUGS (8)
  1. ENBREL [Suspect]
     Indication: PSORIASIS
     Route: 058
     Dates: start: 20070601
  2. CARDURA [Concomitant]
     Route: 065
  3. ATENOLOL [Concomitant]
     Route: 065
  4. ALDACTONE [Concomitant]
     Route: 065
  5. ZANTAC [Concomitant]
     Route: 065
  6. ZYRTEC [Concomitant]
     Route: 065
  7. PRILOSEC [Concomitant]
     Route: 065
  8. ALBUTEROL [Concomitant]
     Route: 065

REACTIONS (4)
  - LOCALISED INFECTION [None]
  - PSORIASIS [None]
  - SKIN ULCER [None]
  - VISUAL ACUITY REDUCED [None]
